FAERS Safety Report 15896380 (Version 1)
Quarter: 2019Q1

REPORT INFORMATION
  Report Type: Spontaneous
  Country: JP (occurrence: JP)
  Receive Date: 20190131
  Receipt Date: 20190131
  Transmission Date: 20190417
  Serious: Yes (Life-Threatening, Hospitalization)
  Sender: FDA-Public Use
  Company Number: JP-OTSUKA-BJ20127956

PATIENT
  Age: 39 Year
  Sex: Female

DRUGS (12)
  1. RISPERIDONE. [Concomitant]
     Active Substance: RISPERIDONE
     Indication: DELUSION
  2. DULOXETINE HYDROCHLORIDE. [Concomitant]
     Active Substance: DULOXETINE HYDROCHLORIDE
     Indication: ANALGESIC THERAPY
     Dosage: 20 MG, QD
     Route: 048
     Dates: start: 20120307, end: 20120423
  3. TRAMADOL HYDROCHLORIDE. [Concomitant]
     Active Substance: TRAMADOL HYDROCHLORIDE
     Indication: ANALGESIC THERAPY
     Dosage: 50 MG, QID
     Route: 048
     Dates: start: 20120227, end: 20120423
  4. ABILIFY [Suspect]
     Active Substance: ARIPIPRAZOLE
     Indication: HALLUCINATION
     Dosage: 6 MG, BID
     Route: 048
     Dates: start: 20120324, end: 20120423
  5. SEROQUEL [Concomitant]
     Active Substance: QUETIAPINE FUMARATE
     Indication: INSOMNIA
     Dosage: 25 MG, QD
     Route: 048
     Dates: start: 20120225, end: 20120423
  6. ABILIFY [Suspect]
     Active Substance: ARIPIPRAZOLE
     Indication: DELUSION
  7. SEROQUEL [Concomitant]
     Active Substance: QUETIAPINE FUMARATE
     Dosage: 50 MG, QD
     Route: 048
     Dates: start: 20120326, end: 20120423
  8. KETALAR [Concomitant]
     Active Substance: KETAMINE HYDROCHLORIDE
     Indication: ANALGESIC THERAPY
     Dosage: 500 MG, QD
     Dates: start: 20120412, end: 20120419
  9. RISPERIDONE. [Concomitant]
     Active Substance: RISPERIDONE
     Indication: HALLUCINATION
     Dosage: 2 G, BID
     Route: 048
     Dates: start: 20120227, end: 20120308
  10. PREGABALIN. [Concomitant]
     Active Substance: PREGABALIN
     Indication: ANALGESIC THERAPY
     Dosage: 75 MG, BID
     Route: 048
     Dates: start: 20120303, end: 20120423
  11. PAVINAL [Concomitant]
     Indication: SEDATION
     Dosage: 100 MG, QD
     Dates: start: 20120416
  12. ROHYPNOL [Concomitant]
     Active Substance: FLUNITRAZEPAM
     Indication: INSOMNIA
     Dosage: 2 MG, QD
     Route: 048
     Dates: start: 20120225, end: 20120423

REACTIONS (3)
  - Abdominal distension [Not Recovered/Not Resolved]
  - Haematemesis [Recovering/Resolving]
  - Insomnia [Recovering/Resolving]

NARRATIVE: CASE EVENT DATE: 20120325
